FAERS Safety Report 4712774-0 (Version None)
Quarter: 2005Q3

REPORT INFORMATION
  Report Type: 
  Country: None (occurrence: None)
  Receive Date: 20050701
  Receipt Date: 20041228
  Transmission Date: 20060218
  Serious: Yes (Other)
  Sender: FDA-Public Use
  Company Number: 2004089981

PATIENT
  Sex: Male

DRUGS (3)
  1. ZOLOFT [Suspect]
     Indication: OBSESSIVE-COMPULSIVE DISORDER
     Dosage: 150 MG, UNKNOWN
     Route: 065
  2. PSEUDOEPHEDRINE HCL [Suspect]
     Indication: SINUS CONGESTION
     Route: 065
  3. LORATADINE [Concomitant]

REACTIONS (5)
  - BELLIGERENCE [None]
  - DRUG INEFFECTIVE [None]
  - DRUG INTERACTION [None]
  - SINUS CONGESTION [None]
  - SUICIDE ATTEMPT [None]
